FAERS Safety Report 7729514-3 (Version None)
Quarter: 2011Q3

REPORT INFORMATION
  Report Type: 
  Country: None (occurrence: None)
  Receive Date: 20110906
  Receipt Date: 20110830
  Transmission Date: 20111222
  Serious: Yes (Other)
  Sender: FDA-Public Use
  Company Number: DE-B.I. PHARMACEUTICALS,INC./RIDGEFIELD-2011-DE-04898DE

PATIENT
  Age: 76 Year
  Sex: Male
  Weight: 99 kg

DRUGS (7)
  1. ARELIX [Concomitant]
  2. LEVOTHYROXINE SODIUM [Concomitant]
  3. ALLOPURINOL [Concomitant]
  4. SPIRIVA [Suspect]
     Indication: CHRONIC OBSTRUCTIVE PULMONARY DISEASE
     Dates: start: 20050101, end: 20110826
  5. ATACAND [Concomitant]
  6. NORVASC [Concomitant]
  7. RR6 [Concomitant]

REACTIONS (4)
  - GLAUCOMA [None]
  - BRONCHIAL CARCINOMA [None]
  - EPISTAXIS [None]
  - CONSTIPATION [None]
